FAERS Safety Report 5609857-X (Version None)
Quarter: 2008Q1

REPORT INFORMATION
  Report Type: 
  Country: None (occurrence: None)
  Receive Date: 20080131
  Receipt Date: 20071022
  Transmission Date: 20080703
  Serious: No
  Sender: FDA-Public Use
  Company Number: US-BAYER-200714111BWH

PATIENT
  Age: 86 Year
  Sex: Male
  Weight: 62 kg

DRUGS (4)
  1. NEXAVAR [Suspect]
     Indication: MESOTHELIOMA
     Dosage: TOTAL DAILY DOSE: 800 MG  UNIT DOSE: 200 MG
     Route: 048
     Dates: start: 20071004
  2. CARTIA XT [Concomitant]
     Indication: HYPERTENSION
     Dosage: TOTAL DAILY DOSE: 180 MG  UNIT DOSE: 180 MG
     Route: 048
     Dates: start: 20070801
  3. ASPIRIN [Concomitant]
     Dosage: TOTAL DAILY DOSE: 81 MG  UNIT DOSE: 81 MG
     Route: 048
     Dates: start: 20070701
  4. LEVOTHYROXINE SODIUM [Concomitant]
     Indication: THYROID DISORDER
     Dosage: TOTAL DAILY DOSE: 50 ?G  UNIT DOSE: 50 ?G
     Route: 048
     Dates: start: 20071001

REACTIONS (2)
  - ASTHENIA [None]
  - FATIGUE [None]
